FAERS Safety Report 9188777 (Version 2)
Quarter: 2013Q2

REPORT INFORMATION
  Report Type: Spontaneous
  Country: JP (occurrence: JP)
  Receive Date: 20130326
  Receipt Date: 20130408
  Transmission Date: 20140414
  Serious: Yes (Other)
  Sender: FDA-Public Use
  Company Number: JP-009507513-1303JPN011287

PATIENT
  Age: 81 Year
  Sex: Male

DRUGS (1)
  1. LIPOVAS [Suspect]
     Indication: DYSLIPIDAEMIA
     Dosage: ONE TABLET A DAY
     Route: 048

REACTIONS (1)
  - Inguinal hernia [Unknown]
